FAERS Safety Report 20611778 (Version 1)
Quarter: 2022Q1

REPORT INFORMATION
  Report Type: Report from Study
  Country: US (occurrence: US)
  Receive Date: 20220318
  Receipt Date: 20220318
  Transmission Date: 20220423
  Serious: Yes (Other)
  Sender: FDA-Public Use
  Company Number: US-OTSUKA-2021_044583

PATIENT
  Age: 60 Year
  Sex: Female
  Weight: 58.05 kg

DRUGS (11)
  1. TOLVAPTAN [Suspect]
     Active Substance: TOLVAPTAN
     Indication: Product used for unknown indication
     Dosage: 45 MG, QD (UPON WAKING)
     Route: 048
     Dates: start: 20211015
  2. TOLVAPTAN [Suspect]
     Active Substance: TOLVAPTAN
     Dosage: 15 MG, QD (8 HOURS LATER)
     Route: 048
     Dates: start: 20211015
  3. LISINOPRIL [Concomitant]
     Active Substance: LISINOPRIL
     Indication: Product used for unknown indication
     Dosage: UNK
     Route: 065
  4. AMLODIPINE [Concomitant]
     Active Substance: AMLODIPINE BESYLATE
     Indication: Product used for unknown indication
     Dosage: UNK
     Route: 065
  5. NORVASC [Concomitant]
     Active Substance: AMLODIPINE BESYLATE
     Indication: Product used for unknown indication
     Dosage: 10 MG, QD
     Route: 065
  6. LIPITOR [Concomitant]
     Active Substance: ATORVASTATIN CALCIUM
     Indication: Product used for unknown indication
     Dosage: 80 MG, QD
     Route: 065
     Dates: start: 20160516
  7. VITAMIN D3 [Concomitant]
     Active Substance: CHOLECALCIFEROL
     Indication: Product used for unknown indication
     Dosage: 1000 IU, QD
     Route: 048
     Dates: start: 20181022
  8. KLOR-CON [Concomitant]
     Active Substance: POTASSIUM CHLORIDE
     Indication: Product used for unknown indication
     Dosage: 10 MEQ, QD
     Route: 048
     Dates: start: 20210419
  9. COZAAR [Concomitant]
     Active Substance: LOSARTAN POTASSIUM
     Indication: Product used for unknown indication
     Dosage: 100 MG, QD
     Route: 048
     Dates: start: 20160516
  10. PROTONIX [Concomitant]
     Active Substance: PANTOPRAZOLE SODIUM
     Indication: Product used for unknown indication
     Dosage: 40 MEQ, QD (BEFORE BREAKFAST)
     Route: 048
  11. SODIUM BICARBONATE [Concomitant]
     Active Substance: SODIUM BICARBONATE
     Indication: Product used for unknown indication
     Dosage: 2 DF, BID
     Route: 048
     Dates: start: 20220208

REACTIONS (16)
  - Acute kidney injury [Unknown]
  - Hypotension [Unknown]
  - Renal impairment [Unknown]
  - Diarrhoea [Recovering/Resolving]
  - Urine leukocyte esterase positive [Unknown]
  - Full blood count abnormal [Unknown]
  - Blood urea decreased [Unknown]
  - Urine analysis abnormal [Unknown]
  - Serum ferritin decreased [Unknown]
  - Platelet count decreased [Unknown]
  - Haematocrit decreased [Unknown]
  - Red blood cell count decreased [Unknown]
  - Haemoglobin decreased [Unknown]
  - Blood creatinine increased [Unknown]
  - Glomerular filtration rate decreased [Unknown]
  - Blood glucose increased [Unknown]

NARRATIVE: CASE EVENT DATE: 20220127
